FAERS Safety Report 4363598-8 (Version None)
Quarter: 2004Q2

REPORT INFORMATION
  Report Type: 
  Country: None (occurrence: None)
  Receive Date: 20040517
  Receipt Date: 20040225
  Transmission Date: 20050107
  Serious: No
  Sender: FDA-Public Use
  Company Number: S04-USA-01275-01

PATIENT
  Age: 78 Year
  Sex: Female

DRUGS (5)
  1. NAMENDA [Suspect]
     Indication: MEMORY IMPAIRMENT
     Dosage: 5 MG QD PO
     Route: 048
     Dates: start: 20040220, end: 20040225
  2. ANTIBIOTIC [Concomitant]
  3. COUGH MEDICINE [Concomitant]
  4. CELEBREX [Concomitant]
  5. MULTI-VITAMINS [Concomitant]

REACTIONS (1)
  - HEADACHE [None]
